FAERS Safety Report 18219309 (Version 1)
Quarter: 2020Q3

REPORT INFORMATION
  Report Type: Spontaneous
  Country: ES (occurrence: ES)
  Receive Date: 20200901
  Receipt Date: 20200901
  Transmission Date: 20201103
  Serious: Yes (Death, Other)
  Sender: FDA-Public Use
  Company Number: ES-TEVA-2020-ES-1821490

PATIENT
  Age: 75 Year
  Sex: Female

DRUGS (8)
  1. OXALIPLATIN. [Suspect]
     Active Substance: OXALIPLATIN
     Indication: COLORECTAL CANCER METASTATIC
  2. BEVACIZUMAB. [Suspect]
     Active Substance: BEVACIZUMAB
     Indication: COLORECTAL CANCER METASTATIC
     Dosage: SHE THEN CONTINUED WITH FLUOROURACIL
     Route: 065
  3. OXALIPLATIN. [Suspect]
     Active Substance: OXALIPLATIN
     Indication: COLORECTAL CANCER STAGE IV
     Dosage: FIRST?LINE CHEMOTHERAPY COMPRISING OF FOLINIC ACID, FLUOROURACIL, AND OXALIPLATIN [FOLFOX] PLUS B...
     Route: 065
  4. BEVACIZUMAB. [Suspect]
     Active Substance: BEVACIZUMAB
     Indication: COLORECTAL CANCER STAGE IV
     Dosage: FIRST?LINE CHEMOTHERAPY COMPRISING OF FOLINIC ACID, FLUOROURACIL, AND OXALIPLATIN [FOLFOX] PLUS B...
     Route: 065
  5. FOLINIC ACID [Suspect]
     Active Substance: LEUCOVORIN
     Indication: COLORECTAL CANCER STAGE IV
     Dosage: FIRST?LINE CHEMOTHERAPY COMPRISING OF FOLINIC ACID, FLUOROURACIL, AND OXALIPLATIN [FOLFOX] PLUS B...
     Route: 065
  6. FOLINIC ACID [Suspect]
     Active Substance: LEUCOVORIN
     Indication: COLORECTAL CANCER METASTATIC
  7. FLUOROURACIL. [Suspect]
     Active Substance: FLUOROURACIL
     Indication: COLORECTAL CANCER STAGE IV
     Dosage: FIRST?LINE CHEMOTHERAPY COMPRISING OF FOLINIC ACID, FLUOROURACIL, AND OXALIPLATIN [FOLFOX] PLUS B...
     Route: 065
  8. FLUOROURACIL. [Suspect]
     Active Substance: FLUOROURACIL
     Indication: COLORECTAL CANCER METASTATIC
     Dosage: LATER, CONTINUED WITH BEVACIZUMAB
     Route: 065

REACTIONS (2)
  - Neurotoxicity [Unknown]
  - Myelosuppression [Unknown]
